FAERS Safety Report 7276771-6 (Version None)
Quarter: 2011Q1

REPORT INFORMATION
  Report Type: 
  Country: None (occurrence: None)
  Receive Date: 20110206
  Receipt Date: 20110131
  Transmission Date: 20110831
  Serious: Yes (Hospitalization)
  Sender: FDA-Public Use
  Company Number: US-BRISTOL-MYERS SQUIBB COMPANY-15522212

PATIENT
  Age: 79 Year
  Sex: Female
  Weight: 59 kg

DRUGS (3)
  1. ERBITUX [Suspect]
     Indication: NON-SMALL CELL LUNG CANCER
     Dosage: LAST DOSE ON 24JAN2011,DOSE 1/31/2011 HELD DUE TO PATIENT IS AN INPATIENT LOW WBCS.
     Dates: start: 20101115
  2. CARBOPLATIN [Suspect]
     Indication: NON-SMALL CELL LUNG CANCER
     Dosage: LAST ADMINS ON 24JAN11
     Dates: start: 20101115
  3. TAXOL [Suspect]
     Indication: NON-SMALL CELL LUNG CANCER
     Dosage: LAST ADMINS ON 24JAN11
     Dates: start: 20101115

REACTIONS (2)
  - PAIN IN EXTREMITY [None]
  - DYSPHAGIA [None]
